FAERS Safety Report 21126385 (Version 1)
Quarter: 2022Q3

REPORT INFORMATION
  Report Type: Spontaneous
  Country: DZ (occurrence: DZ)
  Receive Date: 20220725
  Receipt Date: 20220725
  Transmission Date: 20221027
  Serious: Yes (Disabling)
  Sender: FDA-Public Use
  Company Number: DZ-NOVARTISPH-NVSC2022DZ166333

PATIENT
  Age: 8 Year
  Sex: Female

DRUGS (1)
  1. OMNITROPE [Suspect]
     Active Substance: SOMATROPIN
     Indication: Growth hormone deficiency
     Dosage: 35 ?G/KG
     Route: 058
     Dates: start: 202202, end: 202203

REACTIONS (1)
  - Amaurosis [Recovering/Resolving]

NARRATIVE: CASE EVENT DATE: 20220201
